FAERS Safety Report 23711432 (Version 1)
Quarter: 2024Q2

REPORT INFORMATION
  Report Type: Spontaneous
  Country: US (occurrence: None)
  Receive Date: 20240404
  Receipt Date: 20240404
  Transmission Date: 20240715
  Serious: No
  Sender: FDA-Public Use
  Company Number: None

PATIENT
  Age: 56 Year
  Sex: Male

DRUGS (11)
  1. CAPECITABINE [Suspect]
     Active Substance: CAPECITABINE
     Indication: Metastases to lung
     Dosage: FREQUENCY : AS DIRECTED;?
     Route: 048
     Dates: start: 20231215
  2. ALBUTEROL [Concomitant]
  3. ASPIRIN [Concomitant]
  4. ATORVASTATIN [Concomitant]
  5. CIPROFLOXACIN [Concomitant]
     Active Substance: CIPROFLOXACIN
  6. CYCLOBENZAPRINE [Concomitant]
     Active Substance: CYCLOBENZAPRINE
  7. MAGNESIUM [Concomitant]
  8. METOPROL SUC [Concomitant]
  9. ONDANSETRON [Concomitant]
  10. PREDNISONE [Concomitant]
  11. PROCHLORPER [Concomitant]

REACTIONS (2)
  - Kidney infection [None]
  - Therapy interrupted [None]

NARRATIVE: CASE EVENT DATE: 20240328
